FAERS Safety Report 14128602 (Version 1)
Quarter: 2017Q4

REPORT INFORMATION
  Report Type: Spontaneous
  Country: US (occurrence: US)
  Receive Date: 20171026
  Receipt Date: 20171026
  Transmission Date: 20180321
  Serious: Yes (Other)
  Sender: FDA-Public Use
  Company Number: None

PATIENT
  Age: 73 Year
  Sex: Male
  Weight: 108.45 kg

DRUGS (10)
  1. ATORVASTATIN [Concomitant]
     Active Substance: ATORVASTATIN
  2. PEMBROLIZUMAB. [Suspect]
     Active Substance: PEMBROLIZUMAB
     Indication: LUNG NEOPLASM MALIGNANT
     Dosage: ?          OTHER FREQUENCY:Q 3 WEEKS;?
     Route: 042
     Dates: start: 20170817, end: 20170927
  3. PREDNISONE. [Concomitant]
     Active Substance: PREDNISONE
  4. FERROUS SULFATE. [Concomitant]
     Active Substance: FERROUS SULFATE
  5. OMEPRAZOLE. [Concomitant]
     Active Substance: OMEPRAZOLE
  6. LEVAQUIN [Concomitant]
     Active Substance: LEVOFLOXACIN
  7. OMEGA-3 FATTY ACIDS (FISH OIL) [Concomitant]
  8. IMIPRAMINE [Concomitant]
     Active Substance: IMIPRAMINE
  9. FINASTERIDE. [Concomitant]
     Active Substance: FINASTERIDE
  10. MULTIPLE VITAMINS-MINERALS (CENTRUM) [Concomitant]

REACTIONS (6)
  - Therapy cessation [None]
  - Oxygen saturation decreased [None]
  - Dyspnoea [None]
  - Pneumonia [None]
  - Malaise [None]
  - Pneumonitis [None]

NARRATIVE: CASE EVENT DATE: 20171026
